FAERS Safety Report 8353895-3 (Version None)
Quarter: 2012Q2

REPORT INFORMATION
  Report Type: 
  Country: None (occurrence: None)
  Receive Date: 20120511
  Receipt Date: 20120221
  Transmission Date: 20120825
  Serious: No
  Sender: FDA-Public Use
  Company Number: US-GLAXOSMITHKLINE-A0966861A

PATIENT
  Age: 59 Year
  Sex: Female

DRUGS (3)
  1. FEMARA [Concomitant]
  2. XELODA [Concomitant]
  3. TYKERB [Suspect]
     Indication: PRODUCT USED FOR UNKNOWN INDICATION
     Dosage: 1250MG PER DAY
     Dates: start: 20120217

REACTIONS (2)
  - HEADACHE [None]
  - NEURALGIA [None]
